FAERS Safety Report 20334188 (Version 1)
Quarter: 2022Q1

REPORT INFORMATION
  Report Type: Spontaneous
  Country: US (occurrence: None)
  Receive Date: 20220113
  Receipt Date: 20220113
  Transmission Date: 20220423
  Serious: No
  Sender: FDA-Public Use
  Company Number: 2022A012868

PATIENT
  Sex: Female
  Weight: 95.7 kg

DRUGS (1)
  1. SYMBICORT [Suspect]
     Active Substance: BUDESONIDE\FORMOTEROL FUMARATE DIHYDRATE
     Dosage: 80/4.5 MCG UNKNOWN
     Route: 055

REACTIONS (6)
  - Eye disorder [Unknown]
  - Hordeolum [Unknown]
  - Muscle spasms [Unknown]
  - Rash macular [Unknown]
  - Illness [Unknown]
  - Insurance issue [Unknown]
